FAERS Safety Report 7898044-0 (Version None)
Quarter: 2011Q4

REPORT INFORMATION
  Report Type: 
  Country: None (occurrence: None)
  Receive Date: 20111107
  Receipt Date: 20111107
  Transmission Date: 20120403
  Serious: Yes (Other)
  Sender: FDA-Public Use
  Company Number: None

PATIENT
  Age: 18 Year
  Sex: Female
  Weight: 53.977 kg

DRUGS (1)
  1. COPPER T [Suspect]
     Indication: CONTRACEPTION

REACTIONS (8)
  - FLATULENCE [None]
  - COPPER METABOLISM DISORDER [None]
  - BACK PAIN [None]
  - CANDIDIASIS [None]
  - DEPRESSION [None]
  - HEADACHE [None]
  - ABDOMINAL DISTENSION [None]
  - FATIGUE [None]
